FAERS Safety Report 5444254-1 (Version None)
Quarter: 2007Q3

REPORT INFORMATION
  Report Type: 
  Country: None (occurrence: None)
  Receive Date: 20070904
  Receipt Date: 20070904
  Transmission Date: 20080115
  Serious: Yes (Other)
  Sender: FDA-Public Use
  Company Number: None

PATIENT
  Age: 47 Year
  Sex: Male
  Weight: 96.1626 kg

DRUGS (2)
  1. DARVOCET-N 100 [Suspect]
     Indication: BACK INJURY
     Dosage: 2 4X''S PER DAY
     Dates: start: 19910831, end: 20070901
  2. SOMA [Suspect]
     Indication: NECK INJURY
     Dosage: 2 4X''S PER DAY
     Dates: start: 19910831, end: 20070901

REACTIONS (2)
  - IMPAIRED WORK ABILITY [None]
  - PAIN [None]
